FAERS Safety Report 20249319 (Version 1)
Quarter: 2021Q4

REPORT INFORMATION
  Report Type: Spontaneous
  Country: GB (occurrence: GB)
  Receive Date: 20211229
  Receipt Date: 20211229
  Transmission Date: 20220303
  Serious: Yes (Other)
  Sender: FDA-Public Use
  Company Number: None

PATIENT
  Age: 54 Year
  Sex: Female
  Weight: 72 kg

DRUGS (5)
  1. NAPROXEN [Suspect]
     Active Substance: NAPROXEN
     Dosage: 250MG
     Route: 048
     Dates: start: 20211129
  2. CODEINE PHOSPHATE [Concomitant]
     Active Substance: CODEINE PHOSPHATE
     Dosage: 4 TIMES/ DAY
     Dates: start: 20211129, end: 20211213
  3. DIAZEPAM [Concomitant]
     Active Substance: DIAZEPAM
     Dosage: THREE TIMES A DAY
     Dates: start: 20211117, end: 20211120
  4. POLYETHYLENE GLYCOL 3350\POTASSIUM CHLORIDE\SODIUM BICARBONATE\SODIUM [Concomitant]
     Active Substance: POLYETHYLENE GLYCOL 3350\POTASSIUM CHLORIDE\SODIUM BICARBONATE\SODIUM CHLORIDE
     Dosage: 3 DOSAGE FORMS DAILY;
     Dates: start: 20211117, end: 20211127
  5. TRAMADOL [Concomitant]
     Active Substance: TRAMADOL
     Dosage: FOUR TIMES A DAY
     Dates: start: 20211117, end: 20211120

REACTIONS (5)
  - Rash macular [Recovered/Resolved]
  - Pruritus [Recovered/Resolved]
  - Wheezing [Recovered/Resolved]
  - Lip swelling [Recovered/Resolved]
  - Dyspnoea [Recovered/Resolved]
